FAERS Safety Report 9981157 (Version 1)
Quarter: 2014Q1

REPORT INFORMATION
  Report Type: Report from Study
  Country: CN (occurrence: CN)
  Receive Date: 20140307
  Receipt Date: 20140307
  Transmission Date: 20141002
  Serious: Yes (Other)
  Sender: FDA-Public Use
  Company Number: CN-ROCHE-1361651

PATIENT
  Age: 81 Year
  Sex: Female

DRUGS (2)
  1. XELODA [Suspect]
     Indication: RECTAL CANCER
     Route: 048
     Dates: start: 2012, end: 201304
  2. XELODA [Suspect]
     Route: 048
     Dates: start: 201310

REACTIONS (1)
  - Metastases to lung [Recovering/Resolving]
